FAERS Safety Report 5072943-X (Version None)
Quarter: 2006Q3

REPORT INFORMATION
  Report Type: 
  Country: None (occurrence: None)
  Receive Date: 20060802
  Receipt Date: 20060713
  Transmission Date: 20061208
  Serious: Yes (Hospitalization)
  Sender: FDA-Public Use
  Company Number: AU200605003464

PATIENT
  Age: 66 Year
  Sex: Male

DRUGS (8)
  1. ALIMTA [Suspect]
     Indication: MESOTHELIOMA
  2. CISPLATIN [Concomitant]
  3. DEXAMETHASONE TAB [Concomitant]
  4. CYANOCOBALAMIN [Concomitant]
  5. FOLIC ACID [Concomitant]
  6. MICARDIS [Concomitant]
  7. METOPROLOL (METOPROLOL) [Concomitant]
  8. HYDROCHLOROTHIAZIDE [Concomitant]

REACTIONS (6)
  - CHEST X-RAY ABNORMAL [None]
  - EJECTION FRACTION DECREASED [None]
  - OXYGEN SATURATION DECREASED [None]
  - TACHYCARDIA [None]
  - VENTRICULAR DYSFUNCTION [None]
  - WHEEZING [None]
